FAERS Safety Report 4826365-4 (Version None)
Quarter: 2005Q4

REPORT INFORMATION
  Report Type: 
  Country: None (occurrence: None)
  Receive Date: 20051111
  Receipt Date: 20051103
  Transmission Date: 20060501
  Serious: Yes (Other)
  Sender: FDA-Public Use
  Company Number: PHFR2005GB03642

PATIENT

DRUGS (1)
  1. EXELON [Suspect]
     Dosage: 1.5 MG/DAY

REACTIONS (1)
  - CIRCULATORY COLLAPSE [None]
